FAERS Safety Report 19086561 (Version 2)
Quarter: 2021Q2

REPORT INFORMATION
  Report Type: Spontaneous
  Country: FR (occurrence: FR)
  Receive Date: 20210402
  Receipt Date: 20210409
  Transmission Date: 20210717
  Serious: Yes (Other)
  Sender: FDA-Public Use
  Company Number: FR-MYLANLABS-2021M1019550

PATIENT
  Sex: Male

DRUGS (9)
  1. CLOMIPRAMINE [Suspect]
     Active Substance: CLOMIPRAMINE
     Indication: OBSESSIVE-COMPULSIVE DISORDER
     Dosage: 225 MILLIGRAM, QD
     Route: 065
     Dates: start: 2011
  2. ARIPIPRAZOLE. [Suspect]
     Active Substance: ARIPIPRAZOLE
     Indication: OBSESSIVE-COMPULSIVE DISORDER
     Dosage: 15 MILLIGRAM, QD
     Route: 065
     Dates: start: 2012
  3. VENLAFAXINE [Suspect]
     Active Substance: VENLAFAXINE HYDROCHLORIDE
     Indication: OBSESSIVE-COMPULSIVE DISORDER
     Dosage: 375 MILLIGRAM, QD
     Route: 065
     Dates: start: 2011
  4. CLOMIPRAMINE [Suspect]
     Active Substance: CLOMIPRAMINE
     Dosage: 75 MILLIGRAM, QD,PRIOR TO ENROLMENT IN THE PROSPECTIVE RANDOMISED, DOUBLE?BLIND DBS CLINICAL TRIAL
     Route: 065
  5. FLUOXETINE [Suspect]
     Active Substance: FLUOXETINE HYDROCHLORIDE
     Dosage: 60 MILLIGRAM, QD,PRIOR TO ENROLMENT IN THE PROSPECTIVE RANDOMISED, DOUBLE?BLIND DBS CLINICAL TRIAL
     Route: 065
  6. RISPERIDONE. [Suspect]
     Active Substance: RISPERIDONE
     Indication: OBSESSIVE-COMPULSIVE DISORDER
     Dosage: 3 MILLIGRAM, QD
     Route: 065
     Dates: start: 2012
  7. QUETIAPINE. [Suspect]
     Active Substance: QUETIAPINE
     Indication: OBSESSIVE-COMPULSIVE DISORDER
     Dosage: 400 MILLIGRAM, QD
     Route: 065
     Dates: start: 2012
  8. FLUOXETINE [Suspect]
     Active Substance: FLUOXETINE HYDROCHLORIDE
     Indication: OBSESSIVE-COMPULSIVE DISORDER
     Dosage: 80 MILLIGRAM, QD
     Route: 065
     Dates: start: 2011
  9. ARIPIPRAZOLE. [Suspect]
     Active Substance: ARIPIPRAZOLE
     Dosage: 10 MILLIGRAM, QD, PRIOR TO ENROLMENT IN THE PROSPECTIVE RANDOMISED, DOUBLE?BLIND DBS CLINICAL TRIAL
     Route: 065

REACTIONS (2)
  - Off label use [Unknown]
  - Drug ineffective [Unknown]

NARRATIVE: CASE EVENT DATE: 2011
